FAERS Safety Report 12569989 (Version 1)
Quarter: 2016Q3

REPORT INFORMATION
  Report Type: Spontaneous
  Country: JP (occurrence: JP)
  Receive Date: 20160719
  Receipt Date: 20160719
  Transmission Date: 20161109
  Serious: Yes (Hospitalization)
  Sender: FDA-Public Use
  Company Number: JP-SA-2016SA129349

PATIENT
  Sex: Male

DRUGS (5)
  1. RADICUT [Concomitant]
     Active Substance: EDARAVONE
     Dates: start: 2011
  2. ASPIRIN. [Concomitant]
     Active Substance: ASPIRIN
     Dates: end: 20110619
  3. TICLOPIDINE [Concomitant]
     Active Substance: TICLOPIDINE
     Dates: start: 20110702
  4. TICLOPIDINE [Concomitant]
     Active Substance: TICLOPIDINE
     Dates: end: 20110619
  5. PLAVIX [Suspect]
     Active Substance: CLOPIDOGREL BISULFATE
     Indication: CORONARY ARTERIAL STENT INSERTION
     Route: 048
     Dates: start: 20110627, end: 20110702

REACTIONS (1)
  - Cerebrovascular accident [Recovered/Resolved]

NARRATIVE: CASE EVENT DATE: 20110702
